FAERS Safety Report 6151704-4 (Version None)
Quarter: 2009Q2

REPORT INFORMATION
  Report Type: 
  Country: None (occurrence: None)
  Receive Date: 20090410
  Receipt Date: 20090408
  Transmission Date: 20091009
  Serious: Yes (Other)
  Sender: FDA-Public Use
  Company Number: A0716764A

PATIENT
  Age: 52 Year
  Sex: Female

DRUGS (1)
  1. ADVAIR HFA [Suspect]
     Indication: DRUG USE FOR UNKNOWN INDICATION
     Dates: start: 20080101

REACTIONS (6)
  - CANDIDIASIS [None]
  - FUNGAL INFECTION [None]
  - INFECTION [None]
  - NEOPLASM MALIGNANT [None]
  - ORAL CANDIDIASIS [None]
  - ORAL FUNGAL INFECTION [None]
